FAERS Safety Report 10501183 (Version 1)
Quarter: 2014Q4

REPORT INFORMATION
  Report Type: Spontaneous
  Country: US (occurrence: None)
  Receive Date: 20141006
  Receipt Date: 20141006
  Transmission Date: 20150528
  Serious: Yes (Death)
  Sender: FDA-Public Use
  Company Number: None

PATIENT
  Age: 61 Year
  Sex: Female

DRUGS (5)
  1. POTASSIUM CHLORIDE. [Concomitant]
     Active Substance: POTASSIUM CHLORIDE
  2. ASPIRIN. [Concomitant]
     Active Substance: ASPIRIN
  3. MAGNESIUM OXIDO [Concomitant]
  4. DEXAMETHASONE. [Concomitant]
     Active Substance: DEXAMETHASONE
  5. POMALYST [Suspect]
     Active Substance: POMALIDOMIDE
     Indication: PLASMA CELL MYELOMA
     Dosage: 2MG, DAILY X21D/28D, ORALLY
     Route: 048
     Dates: start: 20140723, end: 20140926

REACTIONS (7)
  - Mental status changes [None]
  - Disease progression [None]
  - Headache [None]
  - Hypercalcaemia [None]
  - Plasma cell myeloma [None]
  - No therapeutic response [None]
  - Balance disorder [None]
